FAERS Safety Report 10422726 (Version 3)
Quarter: 2014Q4

REPORT INFORMATION
  Report Type: Spontaneous
  Country: US (occurrence: US)
  Receive Date: 20140902
  Receipt Date: 20141108
  Transmission Date: 20150528
  Serious: No
  Sender: FDA-Public Use
  Company Number: US-009507513-1409USA000123

PATIENT
  Age: 30 Year
  Sex: Female

DRUGS (2)
  1. NEXPLANON [Suspect]
     Active Substance: ETONOGESTREL
     Indication: CONTRACEPTION
     Dosage: 68MG/ ONCE EVERY 3 YEARS
     Route: 059
     Dates: start: 20140828, end: 20140828
  2. NEXPLANON [Suspect]
     Active Substance: ETONOGESTREL
     Dosage: RECEIVED ANOTHER NEXPLANON ROD
     Route: 059
     Dates: start: 201410

REACTIONS (4)
  - Device difficult to use [Recovered/Resolved]
  - Haemorrhage [Recovering/Resolving]
  - Pain [Recovering/Resolving]
  - Contusion [Recovering/Resolving]

NARRATIVE: CASE EVENT DATE: 20140828
